FAERS Safety Report 7919073-4 (Version None)
Quarter: 2011Q4

REPORT INFORMATION
  Report Type: 
  Country: None (occurrence: None)
  Receive Date: 20111116
  Receipt Date: 20111107
  Transmission Date: 20120403
  Serious: Yes (Hospitalization, Other)
  Sender: FDA-Public Use
  Company Number: CA-ASTRAZENECA-2011SE67466

PATIENT
  Age: 75 Year
  Sex: Female
  Weight: 77.1 kg

DRUGS (6)
  1. PERINDOPRIL ERBUMINE [Suspect]
     Route: 048
  2. ASPIRIN [Concomitant]
  3. LEVOTHYROXINE SODIUM [Concomitant]
  4. CRESTOR [Suspect]
     Route: 048
  5. RATIO-ATENOLOL [Concomitant]
  6. CO AMLODIPINE [Concomitant]

REACTIONS (9)
  - HEPATITIS [None]
  - ABDOMINAL PAIN UPPER [None]
  - DECREASED APPETITE [None]
  - MALAISE [None]
  - JAUNDICE [None]
  - OCULAR ICTERUS [None]
  - FATIGUE [None]
  - YELLOW SKIN [None]
  - CHROMATURIA [None]
